FAERS Safety Report 5236585-5 (Version None)
Quarter: 2007Q1

REPORT INFORMATION
  Report Type: 
  Country: None (occurrence: None)
  Receive Date: 20070208
  Receipt Date: 20070125
  Transmission Date: 20070707
  Serious: Yes (Other)
  Sender: FDA-Public Use
  Company Number: DSA_29289_2007

PATIENT
  Sex: Female
  Weight: 88.4514 kg

DRUGS (4)
  1. VASOTEC [Suspect]
     Indication: HYPERTENSION
     Dosage: 2.5 MG Q DAY PO
     Route: 048
     Dates: start: 20050101, end: 20070101
  2. VASOTEC [Suspect]
     Indication: HYPERTENSION
     Dosage: 2.5 MG ONCE PO
     Route: 048
     Dates: start: 20070125, end: 20070125
  3. VYTORIN [Concomitant]
  4. PAXIL [Concomitant]

REACTIONS (18)
  - ASTHENIA [None]
  - BLOOD PRESSURE INCREASED [None]
  - CHEST DISCOMFORT [None]
  - CHEST PAIN [None]
  - COUGH [None]
  - DIZZINESS [None]
  - DRUG HYPERSENSITIVITY [None]
  - DYSGEUSIA [None]
  - DYSPNOEA [None]
  - FACIAL BONES FRACTURE [None]
  - FEELING DRUNK [None]
  - HYPOSMIA [None]
  - INSOMNIA [None]
  - NASAL CONGESTION [None]
  - NASAL ULCER [None]
  - SINUS DISORDER [None]
  - STOMACH DISCOMFORT [None]
  - SWELLING [None]
